FAERS Safety Report 8772248 (Version 1)
Quarter: 2012Q4

REPORT INFORMATION
  Report Type: 
  Country: US (occurrence: US)
  Receive Date: 20120905
  Receipt Date: 20120905
  Transmission Date: 20130627
  Serious: Yes (Death)
  Sender: FDA-Public Use
  Company Number: US-MYLANLABS-2012S1017481

PATIENT
  Age: 87 Year
  Sex: Male

DRUGS (9)
  1. OXCARBAZEPINE [Suspect]
     Dosage: 150mg daily
     Route: 065
  2. SERTRALINE [Interacting]
     Dosage: 50mg daily.
     Route: 048
  3. ASPIRIN [Concomitant]
     Dosage: 81mg daily
     Route: 048
  4. ATENOLOL [Concomitant]
     Dosage: 100mg daily
     Route: 048
  5. COMBIVENT                          /01261001/ [Concomitant]
     Dosage: 1 puff qid
     Route: 065
  6. FUROSEMIDE [Concomitant]
     Dosage: 20mg daily
     Route: 048
  7. GABAPENTIN [Concomitant]
     Dosage: 600mg tid
     Route: 048
  8. GLIPIZIDE [Concomitant]
     Dosage: 5mg daily
     Route: 048
  9. LEVOFLOXACIN [Concomitant]
     Indication: CELLULITIS
     Dosage: 500mg daily.
     Route: 048

REACTIONS (2)
  - Serotonin syndrome [Fatal]
  - Drug interaction [Fatal]
